FAERS Safety Report 16255661 (Version 1)
Quarter: 2019Q2

REPORT INFORMATION
  Report Type: Spontaneous
  Country: US (occurrence: US)
  Receive Date: 20190430
  Receipt Date: 20190430
  Transmission Date: 20190711
  Serious: Yes (Hospitalization)
  Sender: FDA-Public Use
  Company Number: US-TORRENT-00008470

PATIENT
  Age: 37 Year
  Sex: Female

DRUGS (1)
  1. DULOXETINE. [Suspect]
     Active Substance: DULOXETINE
     Indication: DEPRESSION
     Dosage: 9 AM

REACTIONS (6)
  - Hyperhidrosis [Recovered/Resolved]
  - Drug-induced liver injury [Recovered/Resolved]
  - Tremor [Recovered/Resolved]
  - Hyperthermia [Recovered/Resolved]
  - Anxiety [Recovered/Resolved]
  - Autonomic nervous system imbalance [Recovered/Resolved]
